FAERS Safety Report 13255506 (Version 1)
Quarter: 2017Q1

REPORT INFORMATION
  Report Type: Spontaneous
  Country: US (occurrence: US)
  Receive Date: 20170217
  Receipt Date: 20170217
  Transmission Date: 20170428
  Serious: Yes (Disabling)
  Sender: FDA-Public Use
  Company Number: None

PATIENT
  Age: 59 Year
  Sex: Female
  Weight: 81 kg

DRUGS (7)
  1. ISOMETH/DICH [Concomitant]
  2. MATURE MULTI ADULT 50+ [Concomitant]
  3. BOTOX [Suspect]
     Active Substance: ONABOTULINUMTOXINA
     Indication: MIGRAINE
     Dosage: SUBCUTANEOUS; 175 INJECTION(S)?
     Route: 058
     Dates: start: 20170117, end: 20170117
  4. PROPRANOLOL [Concomitant]
     Active Substance: PROPRANOLOL HYDROCHLORIDE
  5. MECLIZINE [Concomitant]
     Active Substance: MECLIZINE HYDROCHLORIDE
  6. RED YEAST RICE [Concomitant]
     Active Substance: DIETARY SUPPLEMENT
  7. EXTREME OMEGA [Concomitant]

REACTIONS (7)
  - Cerebrovascular accident [None]
  - Dysarthria [None]
  - Muscular weakness [None]
  - Hemiparesis [None]
  - Eyelid ptosis [None]
  - Hypoaesthesia [None]
  - Vision blurred [None]

NARRATIVE: CASE EVENT DATE: 20170120
